FAERS Safety Report 9299128 (Version 3)
Quarter: 2013Q2

REPORT INFORMATION
  Report Type: Spontaneous
  Country: BE (occurrence: BE)
  Receive Date: 20130520
  Receipt Date: 20130618
  Transmission Date: 20140414
  Serious: Yes (Other)
  Sender: FDA-Public Use
  Company Number: BE-ELI_LILLY_AND_COMPANY-BE201305004194

PATIENT
  Sex: Male

DRUGS (5)
  1. ALIMTA [Suspect]
     Indication: NON-SMALL CELL LUNG CANCER
     Dosage: UNK
     Route: 042
     Dates: start: 20120709, end: 20120910
  2. ALIMTA [Suspect]
     Dosage: UNK
     Dates: start: 20121010, end: 201305
  3. CISPLATIN [Concomitant]
     Indication: NON-SMALL CELL LUNG CANCER
  4. FOLIC ACID [Concomitant]
     Indication: PREMEDICATION
  5. VITAMIN B12 [Concomitant]
     Indication: PREMEDICATION

REACTIONS (4)
  - Vocal cord paralysis [Unknown]
  - Malignant neoplasm progression [Unknown]
  - Viral infection [Unknown]
  - General physical health deterioration [Not Recovered/Not Resolved]
